FAERS Safety Report 25022569 (Version 2)
Quarter: 2025Q2

REPORT INFORMATION
  Report Type: Report from Study
  Country: US (occurrence: US)
  Receive Date: 20250228
  Receipt Date: 20250401
  Transmission Date: 20250717
  Serious: Yes (Death)
  Sender: ADC THERAPEUTICS
  Company Number: US-ADC THERAPEUTICS SA-ADC-2025-000047

PATIENT
  Age: 73 Year
  Sex: Male

DRUGS (2)
  1. ZYNLONTA [Suspect]
     Active Substance: LONCASTUXIMAB TESIRINE-LPYL
     Indication: Diffuse large B-cell lymphoma
     Dosage: 10 MG, Q3WK
     Dates: start: 20241120, end: 20241120
  2. ZYNLONTA [Suspect]
     Active Substance: LONCASTUXIMAB TESIRINE-LPYL
     Dosage: 10 MG, Q3WK
     Dates: start: 20250117, end: 20250117

REACTIONS (1)
  - Cardiac failure congestive [Fatal]

NARRATIVE: CASE EVENT DATE: 20250131
